FAERS Safety Report 5065446-X (Version None)
Quarter: 2006Q3

REPORT INFORMATION
  Report Type: 
  Country: None (occurrence: None)
  Receive Date: 20060706
  Receipt Date: 20050425
  Transmission Date: 20061208
  Serious: Yes (Death)
  Sender: FDA-Public Use
  Company Number: 1801

PATIENT
  Age: 40 Year
  Sex: Male

DRUGS (7)
  1. AVINZA [Suspect]
     Indication: NEURALGIA
     Dosage: 320 MG QD NG
     Dates: start: 20050325, end: 20050325
  2. AVINZA [Suspect]
     Indication: NEURALGIA
     Dosage: 510 MG BID NG
     Dates: start: 20050420, end: 20050422
  3. ALPRAZOLAM [Concomitant]
  4. DULOXETINE [Concomitant]
  5. MIDAZOLAM [Concomitant]
  6. MORPHINE SULFATE [Concomitant]
  7. SCOPOLAMINE [Concomitant]

REACTIONS (1)
  - DEATH [None]
